FAERS Safety Report 5266925-2 (Version None)
Quarter: 2007Q1

REPORT INFORMATION
  Report Type: 
  Country: None (occurrence: None)
  Receive Date: 20070316
  Receipt Date: 20070305
  Transmission Date: 20070707
  Serious: Yes (Death, Life-Threatening, Hospitalization, Other)
  Sender: FDA-Public Use
  Company Number: AU-NOVOPROD-261359

PATIENT
  Age: 81 Year
  Sex: Male
  Weight: 65 kg

DRUGS (5)
  1. NOVOSEVEN [Suspect]
     Dosage: 4.8 MG, SINGLE
     Dates: start: 20061112, end: 20061112
  2. TRANEXAMIC ACID [Concomitant]
  3. VITAMIN K                          /00032401/ [Concomitant]
  4. CALCIUM GLUCONATE [Concomitant]
  5. SODIUM BICARBONATE [Concomitant]

REACTIONS (1)
  - CHEST PAIN [None]
